FAERS Safety Report 8508572-2 (Version None)
Quarter: 2012Q3

REPORT INFORMATION
  Report Type: 
  Country: None (occurrence: None)
  Receive Date: 20120713
  Receipt Date: 20120709
  Transmission Date: 20120928
  Serious: Yes (Hospitalization)
  Sender: FDA-Public Use
  Company Number: US-TEVA-347483USA

PATIENT
  Sex: Male

DRUGS (1)
  1. SURMONTIL [Suspect]
     Indication: SLEEP DISORDER

REACTIONS (3)
  - OFF LABEL USE [None]
  - ARRHYTHMIA [None]
  - ATRIAL FIBRILLATION [None]
